FAERS Safety Report 7952125-1 (Version None)
Quarter: 2011Q4

REPORT INFORMATION
  Report Type: 
  Country: None (occurrence: None)
  Receive Date: 20111201
  Receipt Date: 20111122
  Transmission Date: 20120403
  Serious: Yes (Life-Threatening, Other)
  Sender: FDA-Public Use
  Company Number: PHEH2011US009854

PATIENT
  Age: 70 Year
  Sex: Female

DRUGS (16)
  1. RECLAST [Suspect]
     Indication: OSTEOPOROSIS
     Route: 042
     Dates: start: 20111116
  2. VITAMIN E [Concomitant]
  3. MULTI-VITAMINS [Concomitant]
  4. CALCIUM [Concomitant]
  5. ASCORBIC ACID [Concomitant]
  6. FLAXSEED OIL [Concomitant]
  7. VITAMIN D [Concomitant]
  8. POTASSIUM ACETATE [Concomitant]
  9. OMEPRAZOLE [Concomitant]
  10. MAGNESIUM SULFATE [Concomitant]
  11. MELOXICAM [Concomitant]
     Dosage: 15 MG, BID
  12. HYDROCODONE [Concomitant]
  13. PERCOCET [Suspect]
     Indication: PAIN
     Dosage: UNK UKN, UNK
  14. FISH OIL [Concomitant]
  15. VITAMIN B COMPLEX CAP [Concomitant]
  16. METAXALONE [Concomitant]
     Dosage: 800 MG, TWICE TO THRICE PER DAY

REACTIONS (9)
  - GENERAL PHYSICAL HEALTH DETERIORATION [None]
  - FEAR [None]
  - LIMB DISCOMFORT [None]
  - URINARY TRACT INFECTION [None]
  - PARAESTHESIA [None]
  - PAIN [None]
  - FUNGAL INFECTION [None]
  - MUSCULOSKELETAL DISCOMFORT [None]
  - FEELING ABNORMAL [None]
